FAERS Safety Report 7208592-4 (Version None)
Quarter: 2010Q4

REPORT INFORMATION
  Report Type: 
  Country: None (occurrence: None)
  Receive Date: 20101222
  Receipt Date: 20100401
  Transmission Date: 20110411
  Serious: Yes (Hospitalization)
  Sender: FDA-Public Use
  Company Number: 7000112

PATIENT
  Age: 34 Year
  Sex: Female

DRUGS (6)
  1. HYDROXOCOBALAMIN [Suspect]
     Indication: POISONING
     Dosage: 5 GM, INTRAVENOUS (NOT OTHERWISE SPECIFIED)
     Route: 042
  2. SODIUM BICARBONATE IN PLASTIC CONTAINER [Concomitant]
  3. INTRAVENOUS FLUIDS(I.V. SOLUTIONS) [Concomitant]
  4. EPINEPHRINE [Concomitant]
  5. ATROPINE [Concomitant]
  6. NOREPHINEPHRINE (NOREPINEPHRINE) [Concomitant]

REACTIONS (7)
  - BLOOD CYANIDE INCREASED [None]
  - BLOOD PH DECREASED [None]
  - CAROTID PULSE DECREASED [None]
  - GRAND MAL CONVULSION [None]
  - LACTIC ACIDOSIS [None]
  - METABOLIC ACIDOSIS [None]
  - SYNCOPE [None]
